FAERS Safety Report 14613594 (Version 10)
Quarter: 2018Q3

REPORT INFORMATION
  Report Type: Spontaneous
  Country: CA (occurrence: CA)
  Receive Date: 20180308
  Receipt Date: 20180702
  Transmission Date: 20181010
  Serious: Yes (Other)
  Sender: FDA-Public Use
  Company Number: CA-CELLTRION INC.-2018CA018371

PATIENT

DRUGS (13)
  1. VITAMIN D                          /00107901/ [Concomitant]
     Active Substance: ERGOCALCIFEROL
  2. INFLECTRA [Suspect]
     Active Substance: INFLIXIMAB-DYYB
     Dosage: 10 MG/KG, EVERY 6 WEEKS STAT (INMEDIATLY) FOR 6 MONTHS
     Route: 042
  3. SOLU?MEDROL [Concomitant]
     Active Substance: METHYLPREDNISOLONE SODIUM SUCCINATE
     Dosage: UNK
     Dates: start: 20180120, end: 20180213
  4. INFLECTRA [Suspect]
     Active Substance: INFLIXIMAB-DYYB
     Dosage: 10 MG/KG EVERY 4 WEEKS
     Route: 042
     Dates: start: 20180309, end: 20180404
  5. PREDNISONE. [Concomitant]
     Active Substance: PREDNISONE
     Dosage: UNK
     Route: 065
     Dates: start: 20180120
  6. INFLECTRA [Suspect]
     Active Substance: INFLIXIMAB-DYYB
     Dosage: 10 MG/KG, EVERY 3 WEEKS
     Route: 042
     Dates: start: 20180515, end: 20180605
  7. CORTISONE [Concomitant]
     Active Substance: CORTISONE\HYDROCORTISONE
     Dosage: TAPERING DOSE
     Route: 065
  8. INFLECTRA [Suspect]
     Active Substance: INFLIXIMAB-DYYB
     Dosage: 10 MG, (WEEK 5, 11 AND THEN EVERY 8 WEEKS)
     Route: 042
     Dates: start: 20180404
  9. INFLECTRA [Suspect]
     Active Substance: INFLIXIMAB-DYYB
     Dosage: 10 MG/KG, EXTRA DOSE RIGHT AWAY THEN RESUME REGULAR DOSING SCHEDULE; UNKNOWN
     Route: 065
     Dates: start: 20180424, end: 20180424
  10. INFLECTRA [Suspect]
     Active Substance: INFLIXIMAB-DYYB
     Dosage: 10 MG/KG, EXTRA DOSE RIGHT AWAY THEN RESUME REGULAR DOSING SCHEDULE;
     Route: 065
     Dates: start: 20180424
  11. CALCIUM [Concomitant]
     Active Substance: CALCIUM
     Dosage: UNK
     Route: 065
  12. INFLECTRA [Suspect]
     Active Substance: INFLIXIMAB-DYYB
     Indication: COLITIS ULCERATIVE
     Dosage: 355 MG, WEEK 0,1, 5, 11 WEEKS, THEN EVERY 8 WEEKS
     Route: 042
     Dates: start: 20180209, end: 20180216
  13. IRON [Concomitant]
     Active Substance: IRON
     Dosage: UNK
     Route: 065

REACTIONS (5)
  - Off label use [Unknown]
  - Hypoalbuminaemia [Unknown]
  - Condition aggravated [Recovering/Resolving]
  - Product use issue [Unknown]
  - Tuberculosis [Unknown]

NARRATIVE: CASE EVENT DATE: 201802
